FAERS Safety Report 8991848 (Version 1)
Quarter: 2012Q4

REPORT INFORMATION
  Report Type: 
  Country: CH (occurrence: CH)
  Receive Date: 20121231
  Receipt Date: 20121231
  Transmission Date: 20130627
  Serious: Yes (Hospitalization, Other)
  Sender: FDA-Public Use
  Company Number: PHHY2012CH121278

PATIENT
  Age: 17 Year
  Sex: Male

DRUGS (9)
  1. RIMACTANE [Suspect]
     Indication: WOUND INFECTION
     Dosage: 450 mg, BID
     Route: 048
     Dates: start: 20121123
  2. SEROQUEL [Interacting]
     Dosage: 100 mg, UNK
     Route: 048
     Dates: start: 2011
  3. NOZINAN [Interacting]
     Dosage: 20 gtt, BID
     Route: 048
     Dates: start: 2011
  4. KEFZOL [Suspect]
     Indication: WOUND INFECTION
     Dosage: 1 DF, UNK
     Route: 042
     Dates: start: 20121119, end: 20121123
  5. FLOXAPEN [Suspect]
     Indication: WOUND INFECTION
     Dosage: 2.5 mg, QID
     Route: 042
     Dates: start: 20121123
  6. FLOXAPEN [Suspect]
     Dosage: 2 mg, QID
     Route: 042
     Dates: start: 20121123
  7. FLUOXETINE [Concomitant]
     Dosage: 20 mg, UNK
     Route: 048
  8. MINIRIN [Concomitant]
     Dosage: 120 ug, UNK
  9. INFLORAN [Concomitant]
     Route: 048

REACTIONS (4)
  - Therapeutic response decreased [Recovered/Resolved]
  - Rash pruritic [Recovered/Resolved]
  - Petechiae [Recovered/Resolved]
  - Drug interaction [Recovered/Resolved]
